FAERS Safety Report 8322264-4 (Version None)
Quarter: 2012Q2

REPORT INFORMATION
  Report Type: 
  Country: None (occurrence: None)
  Receive Date: 20120430
  Receipt Date: 20120424
  Transmission Date: 20120825
  Serious: Yes (Death, Other)
  Sender: FDA-Public Use
  Company Number: VE-PFIZER INC-2010133218

PATIENT
  Age: 82 Year
  Sex: Female

DRUGS (1)
  1. LIPITOR [Suspect]
     Indication: HYPERCHOLESTEROLAEMIA
     Dosage: 20 MG, ONCE DAILY
     Route: 048
     Dates: start: 20100416, end: 20110501

REACTIONS (1)
  - RESPIRATORY ARREST [None]
